FAERS Safety Report 4284289-8 (Version None)
Quarter: 2004Q1

REPORT INFORMATION
  Report Type: 
  Country: None (occurrence: None)
  Receive Date: 20040202
  Receipt Date: 20040202
  Transmission Date: 20041129
  Serious: Yes (Hospitalization)
  Sender: FDA-Public Use
  Company Number: None

PATIENT
  Age: 89 Year
  Sex: Female

DRUGS (4)
  1. COUMADIN [Suspect]
     Dosage: 3 MG PO QD
     Route: 048
  2. NORVASC [Concomitant]
  3. LANOXIN [Concomitant]
  4. LASIX [Concomitant]

REACTIONS (3)
  - COMA [None]
  - GASTROINTESTINAL HAEMORRHAGE [None]
  - RESPIRATORY ARREST [None]
